FAERS Safety Report 15979429 (Version 8)
Quarter: 2019Q4

REPORT INFORMATION
  Report Type: Spontaneous
  Country: US (occurrence: US)
  Receive Date: 20190219
  Receipt Date: 20191031
  Transmission Date: 20200122
  Serious: No
  Sender: FDA-Public Use
  Company Number: US-PFIZER INC-2018163472

PATIENT
  Age: 7 Year
  Sex: Male

DRUGS (8)
  1. GENOTROPIN [Suspect]
     Active Substance: SOMATROPIN
     Indication: BODY HEIGHT BELOW NORMAL
     Dosage: 0.7 MG, DAILY
     Dates: start: 20180331
  2. FLOVENT HFA [Concomitant]
     Active Substance: FLUTICASONE PROPIONATE
     Indication: ASTHMA
     Dosage: 44 UG, 2X/DAY
  3. ATOMOXETINE. [Concomitant]
     Active Substance: ATOMOXETINE HYDROCHLORIDE
     Dosage: 18 MG, 1X/DAY
  4. GENOTROPIN [Suspect]
     Active Substance: SOMATROPIN
     Dosage: 0.7 MG, DAILY
     Route: 058
     Dates: start: 2018
  5. MONTELUKAST [Concomitant]
     Active Substance: MONTELUKAST SODIUM
     Indication: HYPERSENSITIVITY
     Dosage: 5 MG, 1X/DAY (ONCE AT NIGHT)
     Route: 048
  6. GENOTROPIN [Suspect]
     Active Substance: SOMATROPIN
     Indication: GROWTH RETARDATION
     Dosage: 0.7 MG, ONCE A DAY
     Dates: start: 20180504
  7. GENOTROPIN [Suspect]
     Active Substance: SOMATROPIN
     Dosage: 0.8 MG, DAILY
  8. PROAIR HFA [Concomitant]
     Active Substance: ALBUTEROL SULFATE
     Indication: ASTHMA
     Dosage: 90 UG, UNK

REACTIONS (9)
  - Blood triglycerides increased [Unknown]
  - Albumin globulin ratio increased [Unknown]
  - Incorrect dose administered [Unknown]
  - Wrong technique in device usage process [Unknown]
  - Platelet count increased [Unknown]
  - Product dose omission [Unknown]
  - Poor quality device used [Unknown]
  - Blood cholesterol increased [Unknown]
  - Very low density lipoprotein increased [Unknown]

NARRATIVE: CASE EVENT DATE: 20181012
